FAERS Safety Report 9163090 (Version 2)
Quarter: 2014Q3

REPORT INFORMATION
  Report Type: Spontaneous
  Country: IN (occurrence: IN)
  Receive Date: 20130314
  Receipt Date: 20140703
  Transmission Date: 20150326
  Serious: Yes (Death, Other)
  Sender: FDA-Public Use
  Company Number: PHHY2013IN024917

PATIENT
  Age: 31 Year
  Sex: Male

DRUGS (2)
  1. ISONIAZID. [Suspect]
     Active Substance: ISONIAZID
     Dosage: 9 G, UNK
  2. RIFAMPICIN [Suspect]
     Active Substance: RIFAMPIN
     Dosage: 6.75 G, UNK

REACTIONS (15)
  - Lactic acidosis [Fatal]
  - Blood pressure abnormal [Fatal]
  - Hepatic function abnormal [Unknown]
  - Altered state of consciousness [Unknown]
  - Metabolic acidosis [Unknown]
  - Shock [Fatal]
  - Rhabdomyolysis [Unknown]
  - Generalised tonic-clonic seizure [Unknown]
  - Toxicity to various agents [Fatal]
  - Vomiting [Fatal]
  - Renal failure [Fatal]
  - Renal impairment [Fatal]
  - Chromaturia [Fatal]
  - Respiratory distress [Unknown]
  - Coma [Unknown]
